FAERS Safety Report 9163523 (Version 2)
Quarter: 2013Q2

REPORT INFORMATION
  Report Type: Spontaneous
  Country: US (occurrence: US)
  Receive Date: 20130314
  Receipt Date: 20130405
  Transmission Date: 20140414
  Serious: Yes (Other)
  Sender: FDA-Public Use
  Company Number: US-PFIZER INC-2013084240

PATIENT
  Age: 57 Year
  Sex: Female
  Weight: 82 kg

DRUGS (12)
  1. NEURONTIN [Suspect]
     Indication: INTERVERTEBRAL DISC PROTRUSION
     Dosage: 300 MG, 1X/DAY (HS)
     Route: 048
     Dates: start: 20090423
  2. NEURONTIN [Suspect]
     Indication: BACK PAIN
     Dosage: 300 MG, 3X/DAY
     Route: 048
  3. NEURONTIN [Suspect]
     Indication: SCIATICA
     Dosage: UNK
     Route: 048
     Dates: start: 201301, end: 201301
  4. LIPITOR [Concomitant]
     Indication: BLOOD CHOLESTEROL INCREASED
     Dosage: UNK
  5. CORTISONE [Concomitant]
     Indication: BACK PAIN
     Dosage: UNK
  6. VICODIN [Concomitant]
     Dosage: HYDROCODONE BITARTRATE 5/ PARACETAMOL500 UNK, Q4-6 AS NEEDED
  7. HYDROCHLOROTHIAZIDE WITH TRIAMTERENE [Concomitant]
     Dosage: UNK, 1X/DAY
  8. SIMVASTATIN [Concomitant]
     Dosage: 40 UNK,1X/DAY
  9. FLEXERIL [Concomitant]
     Dosage: 10 UNK, TID AS NEEDED
  10. ATARAX [Concomitant]
     Dosage: 10 UNK, 1-2 QID AS NEEDED
  11. ZIAC [Concomitant]
     Dosage: 5 UNK, 1X/DAY
  12. SERTRALINE [Concomitant]
     Dosage: 150 UNK, 1X/DAY

REACTIONS (6)
  - Suicidal ideation [Unknown]
  - Urticaria [Unknown]
  - Rash [Unknown]
  - Drug hypersensitivity [Unknown]
  - Pain [Unknown]
  - Abnormal dreams [Unknown]
